FAERS Safety Report 7309497-0 (Version None)
Quarter: 2011Q1

REPORT INFORMATION
  Report Type: 
  Country: None (occurrence: None)
  Receive Date: 20110223
  Receipt Date: 20110214
  Transmission Date: 20110831
  Serious: Yes (Hospitalization)
  Sender: FDA-Public Use
  Company Number: JP-B.I. PHARMACEUTICALS,INC./RIDGEFIELD-2011-BP-02829NB

PATIENT
  Age: 75 Year
  Sex: Male

DRUGS (11)
  1. GRINKOOL [Concomitant]
     Dosage: 45 MG
     Route: 048
     Dates: start: 20101208
  2. MAINHEART [Concomitant]
     Dosage: 5 MG
     Route: 048
  3. TRANSAMIN [Concomitant]
     Dosage: 750 MG
     Route: 048
     Dates: start: 20101208
  4. MICAMLO COMBINATION [Suspect]
     Indication: HYPERTENSION
     Dosage: 1DF
     Route: 048
     Dates: start: 20101208
  5. GENINAX [Concomitant]
     Dosage: 400 MG
     Route: 048
     Dates: start: 20101208
  6. BOFU-TAUAHO-SAN [Concomitant]
     Dosage: 7.5 G
     Route: 048
  7. CLARITHROMYCIN [Concomitant]
     Dosage: 200 MG
     Route: 048
  8. CEPHADOL [Concomitant]
     Dosage: 75 MG
     Route: 048
  9. METHYCOBAL [Concomitant]
     Dosage: 1500 MG
     Route: 048
  10. RIZE [Concomitant]
     Dosage: 5 MG
     Route: 048
     Dates: start: 20101208
  11. ADETPHOS [Concomitant]
     Dosage: 180 MG
     Route: 048

REACTIONS (1)
  - CEREBRAL INFARCTION [None]
